FAERS Safety Report 4801318-0 (Version None)
Quarter: 2005Q4

REPORT INFORMATION
  Report Type: 
  Country: None (occurrence: None)
  Receive Date: 20051012
  Receipt Date: 20050929
  Transmission Date: 20060501
  Serious: Yes (Other)
  Sender: FDA-Public Use
  Company Number: 2005JP001398

PATIENT
  Age: 65 Year
  Sex: Male
  Weight: 68 kg

DRUGS (4)
  1. PROGRAF [Suspect]
     Indication: MYASTHENIA GRAVIS
     Dosage: 1.00 MG, BID, ORAL
     Route: 048
     Dates: start: 20020723, end: 20041222
  2. MESTINON [Suspect]
     Dosage: 120.00 MG, UID/QD, ORAL
     Route: 048
     Dates: start: 20020701, end: 20041222
  3. BUFFERIN [Suspect]
     Dosage: ORAL
     Route: 048
  4. PROTON PUMP INHIBITORS [Suspect]
     Dosage: ORAL
     Route: 048

REACTIONS (6)
  - DEHYDRATION [None]
  - DIARRHOEA [None]
  - GASTROINTESTINAL DISORDER [None]
  - RENAL IMPAIRMENT [None]
  - RENAL TUBULAR ATROPHY [None]
  - TUBULOINTERSTITIAL NEPHRITIS [None]
